FAERS Safety Report 18469275 (Version 1)
Quarter: 2020Q4

REPORT INFORMATION
  Report Type: Spontaneous
  Country: US (occurrence: US)
  Receive Date: 20201105
  Receipt Date: 20201105
  Transmission Date: 20210114
  Serious: Yes (Other)
  Sender: FDA-Public Use
  Company Number: US-SA-2020SA234586

PATIENT

DRUGS (3)
  1. ENBREL [Concomitant]
     Active Substance: ETANERCEPT
  2. DUPIXENT [Suspect]
     Active Substance: DUPILUMAB
     Indication: PALMOPLANTAR PUSTULOSIS
  3. DUPIXENT [Suspect]
     Active Substance: DUPILUMAB
     Indication: DERMATITIS ATOPIC
     Dosage: 300 MG, QOW
     Route: 058
     Dates: start: 20200512

REACTIONS (3)
  - Pulmonary fibrosis [Unknown]
  - Dyspnoea [Unknown]
  - Product use in unapproved indication [Unknown]

NARRATIVE: CASE EVENT DATE: 2020
